FAERS Safety Report 12703459 (Version 2)
Quarter: 2016Q3

REPORT INFORMATION
  Report Type: Spontaneous
  Country: US (occurrence: US)
  Receive Date: 20160831
  Receipt Date: 20160913
  Transmission Date: 20161109
  Serious: Yes (Other)
  Sender: FDA-Public Use
  Company Number: US-PFIZER INC-2016402531

PATIENT
  Age: 93 Year
  Sex: Male

DRUGS (1)
  1. DESMOPRESSIN ACETATE. [Suspect]
     Active Substance: DESMOPRESSIN ACETATE
     Indication: BLEEDING TIME PROLONGED
     Dosage: 0.3 MCG/KG, OR 20 MCG TOTAL OVER 30 MIN
     Route: 042

REACTIONS (1)
  - Thrombotic cerebral infarction [Recovering/Resolving]
